FAERS Safety Report 23136445 (Version 1)
Quarter: 2023Q4

REPORT INFORMATION
  Report Type: Spontaneous
  Country: CA (occurrence: CA)
  Receive Date: 20231102
  Receipt Date: 20231102
  Transmission Date: 20240110
  Serious: Yes (Hospitalization)
  Sender: FDA-Public Use
  Company Number: CA-BoehringerIngelheim-2023-BI-269864

PATIENT
  Age: 77 Year
  Sex: Male

DRUGS (2)
  1. TIOTROPIUM [Suspect]
     Active Substance: TIOTROPIUM
     Indication: Product used for unknown indication
  2. PREDNISONE [Concomitant]
     Active Substance: PREDNISONE

REACTIONS (11)
  - Asthma [Unknown]
  - Asthma [Unknown]
  - Sputum abnormal [Unknown]
  - Dyspnoea exertional [Unknown]
  - Cough [Unknown]
  - Dyspnoea [Unknown]
  - Hypoventilation [Unknown]
  - Myopathy [Unknown]
  - Muscular weakness [Unknown]
  - Atrial fibrillation [Unknown]
  - N-terminal prohormone brain natriuretic peptide increased [Unknown]

NARRATIVE: CASE EVENT DATE: 20180101
